FAERS Safety Report 7804127-3 (Version None)
Quarter: 2011Q4

REPORT INFORMATION
  Report Type: 
  Country: None (occurrence: None)
  Receive Date: 20111010
  Receipt Date: 20110930
  Transmission Date: 20120403
  Serious: Yes (Other)
  Sender: FDA-Public Use
  Company Number: JP-ASTELLAS-2011JP006900

PATIENT
  Sex: Female

DRUGS (2)
  1. CELECOXIB [Suspect]
     Dosage: UNK
     Route: 048
  2. PROGRAF [Suspect]
     Dosage: UNK
     Route: 048

REACTIONS (2)
  - HISTIOCYTOSIS HAEMATOPHAGIC [None]
  - PANCYTOPENIA [None]
